FAERS Safety Report 20322934 (Version 1)
Quarter: 2022Q1

REPORT INFORMATION
  Report Type: Spontaneous
  Country: NL (occurrence: NL)
  Receive Date: 20220111
  Receipt Date: 20220111
  Transmission Date: 20220424
  Serious: Yes (Other)
  Sender: FDA-Public Use
  Company Number: None

PATIENT
  Sex: Female
  Weight: 75 kg

DRUGS (5)
  1. ATORVASTATIN [Suspect]
     Active Substance: ATORVASTATIN
     Indication: Hypercholesterolaemia
     Dosage: 10 MILLIGRAM DAILY; 1 X 1 PER DAY IN THE EVENING
     Dates: start: 2021, end: 20210228
  2. VENTOLIN [Concomitant]
     Active Substance: ALBUTEROL SULFATE
     Dosage: 1 DOSAGE FORMS DAILY; 1 X 1 PER DAY OF THE FIRST TWO,SOMETIMES VENTOLIN, SALBUTAMOL AEROSOL 100UG/DO
  3. DESLORATADINE [Concomitant]
     Active Substance: DESLORATADINE
     Dosage: 1 X 1 PER DAY OF THE FIRST TWO.THERAPY START DATE :ASKU, THERAPY END DATE: ASKU
  4. NITROGLYCERIN [Concomitant]
     Active Substance: NITROGLYCERIN
     Dosage: 4MG/DO / BRAND NAME NOT SPECIFIED,THERAPY START DATE :ASKU, THERAPY END DATE: ASKU
  5. WELLBUTRIN [Concomitant]
     Active Substance: BUPROPION HYDROCHLORIDE
     Dosage: 1 DOSAGE FORMS DAILY; 1 X 1 PER DAY OF THE FIRST TWO. THERAPY START DATE :ASKU, THERAPY END DATE: AS

REACTIONS (2)
  - Muscle rupture [Recovering/Resolving]
  - Muscle spasms [Recovering/Resolving]
